FAERS Safety Report 17603275 (Version 2)
Quarter: 2020Q2

REPORT INFORMATION
  Report Type: Spontaneous
  Country: US (occurrence: US)
  Receive Date: 20200331
  Receipt Date: 20200609
  Transmission Date: 20200713
  Serious: No
  Sender: FDA-Public Use
  Company Number: US-TEVA-2020-US-1212242

PATIENT
  Age: 71 Year
  Sex: Female

DRUGS (5)
  1. BELSOMRA [Concomitant]
     Active Substance: SUVOREXANT
  2. KLONOPIN [Concomitant]
     Active Substance: CLONAZEPAM
  3. TYLENOL [Concomitant]
     Active Substance: ACETAMINOPHEN
  4. NEURONTIN [Concomitant]
     Active Substance: GABAPENTIN
  5. AJOVY [Suspect]
     Active Substance: FREMANEZUMAB-VFRM
     Indication: MIGRAINE
     Dosage: STARTED ^ABOUT A YEAR AGO^

REACTIONS (2)
  - Blood test abnormal [Unknown]
  - Back pain [Unknown]

NARRATIVE: CASE EVENT DATE: 202002
